FAERS Safety Report 14924268 (Version 1)
Quarter: 2018Q2

REPORT INFORMATION
  Report Type: Spontaneous
  Country: US (occurrence: US)
  Receive Date: 20180503
  Receipt Date: 20180503
  Transmission Date: 20180711
  Serious: No
  Sender: FDA-Public Use
  Company Number: None

PATIENT
  Age: 46 Year
  Sex: Male
  Weight: 131.5 kg

DRUGS (2)
  1. LISINOPRIL/HCTZ [Concomitant]
     Active Substance: HYDROCHLOROTHIAZIDE\LISINOPRIL
     Dates: start: 20180428, end: 20180501
  2. LISINOPRIL/HCTZ [Suspect]
     Active Substance: HYDROCHLOROTHIAZIDE\LISINOPRIL
     Indication: HYPERTENSION
     Route: 048
     Dates: start: 20180428, end: 20180501

REACTIONS (4)
  - Confusional state [None]
  - Anxiety [None]
  - Nervousness [None]
  - Feeling abnormal [None]

NARRATIVE: CASE EVENT DATE: 20180501
